FAERS Safety Report 10025782 (Version 2)
Quarter: 2014Q2

REPORT INFORMATION
  Report Type: Spontaneous
  Country: US (occurrence: US)
  Receive Date: 20140320
  Receipt Date: 20140409
  Transmission Date: 20141212
  Serious: Yes (Death, Other)
  Sender: FDA-Public Use
  Company Number: US-GILEAD-2014-0097287

PATIENT
  Sex: Female

DRUGS (3)
  1. LETAIRIS [Suspect]
     Indication: PULMONARY HYPERTENSION
     Dosage: 5 MG, QD
     Route: 048
     Dates: start: 20140205
  2. LETAIRIS [Suspect]
     Indication: PULMONARY FIBROSIS
  3. COUMADIN                           /00014802/ [Concomitant]

REACTIONS (5)
  - Acute respiratory failure [Fatal]
  - Pulmonary fibrosis [Fatal]
  - Interstitial lung disease [Fatal]
  - Pulmonary hypertension [Fatal]
  - Chronic respiratory failure [Fatal]
